FAERS Safety Report 7652446-6 (Version None)
Quarter: 2011Q3

REPORT INFORMATION
  Report Type: 
  Country: None (occurrence: None)
  Receive Date: 20110728
  Receipt Date: 20110713
  Transmission Date: 20111222
  Serious: Yes (Death, Hospitalization, Other)
  Sender: FDA-Public Use
  Company Number: 2011P1007826

PATIENT
  Age: 74 Year
  Sex: Male

DRUGS (5)
  1. XENADERM OINTMENT (NO PREF. NAME) [Suspect]
     Dates: start: 20100101, end: 20100101
  2. UNSPECIFIED MEDICATION FOR IRREGULAR HEARTBEAT [Concomitant]
  3. UNSPECIFIED MEDICATION FOR ARTHRITIC PAIN [Concomitant]
  4. MULTIPLE ADDITIONAL UNSPECIFIED MEDICATIONS [Concomitant]
  5. UNSPECIFIED MEDICATION FOR HIGH BLOOD PRESSURE [Concomitant]

REACTIONS (4)
  - HEART RATE INCREASED [None]
  - EXTRASYSTOLES [None]
  - ACUTE RESPIRATORY DISTRESS SYNDROME [None]
  - PNEUMONIA [None]
